FAERS Safety Report 7600511-1 (Version None)
Quarter: 2011Q3

REPORT INFORMATION
  Report Type: 
  Country: None (occurrence: None)
  Receive Date: 20110711
  Receipt Date: 20110627
  Transmission Date: 20111222
  Serious: Yes (Hospitalization)
  Sender: FDA-Public Use
  Company Number: JP-ROCHE-719847

PATIENT
  Sex: Female

DRUGS (21)
  1. CAPECITABINE [Concomitant]
     Route: 048
     Dates: start: 20110225, end: 20110308
  2. CAPECITABINE [Concomitant]
     Route: 048
     Dates: start: 20110507, end: 20110511
  3. GRANISETRON HYDROCHLORIDE [Suspect]
     Indication: PROPHYLAXIS OF NAUSEA AND VOMITING
     Dosage: DRUG NAME: KYTRIL 3MG BAG(GRANISETRON)
     Route: 041
     Dates: start: 20100616
  4. DECADRON [Suspect]
     Route: 048
     Dates: start: 20100616, end: 20100711
  5. ZOMETA [Suspect]
     Indication: METASTASES TO BONE
     Dosage: DRUG NAME: ZOMETA(ZOLEDRONIC ACID HYDRATE)
     Route: 041
     Dates: start: 20100616
  6. PYDOXAL [Suspect]
     Indication: PROPHYLAXIS
     Route: 048
     Dates: start: 20100616
  7. CAPECITABINE [Concomitant]
     Route: 048
     Dates: start: 20110420, end: 20110420
  8. CAPECITABINE [Concomitant]
     Route: 048
     Dates: start: 20110427, end: 20110506
  9. CAPECITABINE [Concomitant]
     Route: 048
     Dates: start: 20110318, end: 20110330
  10. GRANISETRON HYDROCHLORIDE [Suspect]
     Indication: PREMEDICATION
     Dosage: DRUG NAME:KYTRIL(GRANISETRON)
     Route: 048
     Dates: start: 20100616, end: 20100711
  11. TAXOTERE [Suspect]
     Indication: BREAST CANCER RECURRENT
     Dosage: DRUG NAME:TAXOTERE(DOCETAXEL HYDRATE),
     Route: 041
     Dates: start: 20100616
  12. CAPECITABINE [Concomitant]
     Route: 048
     Dates: start: 20110316, end: 20110316
  13. TAXOTERE [Suspect]
     Dosage: DOSE OF DOCETAXEL WAS REDUCED TO 109MG/BODY DUE TO ADVERSE EVENT OF PULMONARY ARTERY THROMBOSIS
     Route: 041
     Dates: start: 20100818
  14. CAPECITABINE [Concomitant]
     Route: 048
     Dates: start: 20110317, end: 20110317
  15. CHLORPHENIRAMINE MALEATE [Suspect]
     Indication: PREMEDICATION
     Dosage: DRUG NAME: POLARAMINE(CHLORPHENIRAMINE MALEATE)
     Route: 041
     Dates: start: 20100616
  16. FAMOTIDINE [Suspect]
     Indication: PREMEDICATION
     Route: 041
     Dates: start: 20100616
  17. CAPECITABINE [Concomitant]
     Route: 048
     Dates: start: 20110419, end: 20110419
  18. DECADRON [Suspect]
     Indication: PREMEDICATION
     Dosage: DRUG NAME:DECADRON(DEXAMETHASONE SODIUM PHOSPHATE)
     Route: 041
     Dates: start: 20100616
  19. NAUZELIN [Suspect]
     Indication: PREMEDICATION
     Route: 048
     Dates: start: 20100616, end: 20100711
  20. CAPECITABINE [Concomitant]
     Route: 048
     Dates: start: 20110223, end: 20110224
  21. CAPECITABINE [Concomitant]
     Route: 048
     Dates: start: 20110406, end: 20110419

REACTIONS (11)
  - NEUTROPHIL COUNT DECREASED [None]
  - PULMONARY ARTERY THROMBOSIS [None]
  - VOMITING [None]
  - ALOPECIA [None]
  - INJECTION SITE EXTRAVASATION [None]
  - FATIGUE [None]
  - STOMATITIS [None]
  - DECREASED APPETITE [None]
  - MALAISE [None]
  - NAUSEA [None]
  - PALMAR-PLANTAR ERYTHRODYSAESTHESIA SYNDROME [None]
